FAERS Safety Report 8111469-3 (Version None)
Quarter: 2012Q1

REPORT INFORMATION
  Report Type: 
  Country: None (occurrence: None)
  Receive Date: 20120203
  Receipt Date: 20120124
  Transmission Date: 20120608
  Serious: Yes (Hospitalization)
  Sender: FDA-Public Use
  Company Number: JP-JNJFOC-20120112085

PATIENT
  Age: 77 Year
  Sex: Male

DRUGS (4)
  1. PREDNISOLONE [Suspect]
     Indication: ILL-DEFINED DISORDER
     Route: 048
     Dates: start: 20100201
  2. RHEUMATREX [Suspect]
     Indication: PRODUCT USED FOR UNKNOWN INDICATION
     Route: 048
     Dates: start: 20110711
  3. REMICADE [Suspect]
     Indication: RHEUMATOID ARTHRITIS
     Route: 042
     Dates: start: 20111114
  4. REMICADE [Suspect]
     Dosage: 3RD DOSE
     Route: 042
     Dates: start: 20111226

REACTIONS (2)
  - CONTRAINDICATION TO VACCINATION [None]
  - PNEUMONIA BACTERIAL [None]
